FAERS Safety Report 4535768-7 (Version None)
Quarter: 2004Q4

REPORT INFORMATION
  Report Type: 
  Country: None (occurrence: None)
  Receive Date: 20041223
  Receipt Date: 20040226
  Transmission Date: 20050328
  Serious: No
  Sender: FDA-Public Use
  Company Number: US-GLAXOSMITHKLINE-A0500388A

PATIENT
  Age: 47 Year
  Sex: Female

DRUGS (4)
  1. FLONASE [Suspect]
     Indication: RHINITIS
     Route: 045
  2. SYNTHROID [Concomitant]
  3. MICRONOR [Concomitant]
  4. PREMARIN [Concomitant]

REACTIONS (1)
  - BONE DENSITY DECREASED [None]
